FAERS Safety Report 15046398 (Version 1)
Quarter: 2018Q2

REPORT INFORMATION
  Report Type: Spontaneous
  Country: US (occurrence: US)
  Receive Date: 20180621
  Receipt Date: 20180621
  Transmission Date: 20180711
  Serious: Yes (Hospitalization)
  Sender: FDA-Public Use
  Company Number: US-SAGENT PHARMACEUTICALS-2018SAG001039

PATIENT

DRUGS (15)
  1. KETAMINE [Suspect]
     Active Substance: KETAMINE
  2. FELBAMATE. [Suspect]
     Active Substance: FELBAMATE
  3. ALLOPREGNANOLONE [Suspect]
     Active Substance: BREXANOLONE
  4. METHYLPREDNISOLONE. [Suspect]
     Active Substance: METHYLPREDNISOLONE
  5. PERAMPANEL [Suspect]
     Active Substance: PERAMPANEL
  6. VALPROIC ACID. [Suspect]
     Active Substance: VALPROIC ACID
  7. TOPIRAMATE. [Suspect]
     Active Substance: TOPIRAMATE
  8. PHENYTOIN. [Suspect]
     Active Substance: PHENYTOIN
     Indication: STATUS EPILEPTICUS
  9. MIDAZOLAM [Suspect]
     Active Substance: MIDAZOLAM HYDROCHLORIDE
  10. ZONISAMIDE. [Suspect]
     Active Substance: ZONISAMIDE
  11. CARBAMAZEPINE. [Suspect]
     Active Substance: CARBAMAZEPINE
  12. PENTOBARBITAL. [Suspect]
     Active Substance: PENTOBARBITAL
  13. LEVETIRACETAM. [Suspect]
     Active Substance: LEVETIRACETAM
     Indication: STATUS EPILEPTICUS
     Dosage: UNK MG, UNK
  14. LORAZEPAM. [Suspect]
     Active Substance: LORAZEPAM
     Indication: STATUS EPILEPTICUS
     Dosage: UNK
  15. LACOSAMIDE. [Suspect]
     Active Substance: LACOSAMIDE
     Indication: STATUS EPILEPTICUS

REACTIONS (2)
  - Status epilepticus [Recovered/Resolved]
  - Treatment failure [Unknown]

NARRATIVE: CASE EVENT DATE: 201503
